FAERS Safety Report 5038059-3 (Version None)
Quarter: 2006Q2

REPORT INFORMATION
  Report Type: 
  Country: None (occurrence: None)
  Receive Date: 20060602
  Receipt Date: 20050713
  Transmission Date: 20061013
  Serious: No
  Sender: FDA-Public Use
  Company Number: 05P-163-0305602-00

PATIENT
  Sex: Female
  Weight: 72.5 kg

DRUGS (1)
  1. ZEMPLAR [Suspect]
     Indication: RENAL FAILURE CHRONIC
     Dosage: 4 MCG, 3 IN 1 WK, INTRAVENOUS
     Route: 042
     Dates: start: 20050316, end: 20050516

REACTIONS (2)
  - PRURITUS [None]
  - RASH [None]
